FAERS Safety Report 4745596-5 (Version None)
Quarter: 2005Q3

REPORT INFORMATION
  Report Type: 
  Country: None (occurrence: None)
  Receive Date: 20050815
  Receipt Date: 20050803
  Transmission Date: 20060218
  Serious: Yes (Other)
  Sender: FDA-Public Use
  Company Number: 2005111019

PATIENT
  Sex: Male
  Weight: 81.6475 kg

DRUGS (4)
  1. MECLIZINE [Suspect]
     Indication: DIZZINESS
     Dosage: 50 MG (25 MG, 2 IN 1 D)
  2. VIAGRA [Concomitant]
  3. TRAMADOL HCL [Concomitant]
  4. CASODEX [Concomitant]

REACTIONS (5)
  - CONDITION AGGRAVATED [None]
  - DIZZINESS [None]
  - ERECTILE DYSFUNCTION [None]
  - NERVOUSNESS [None]
  - PROSTATE CANCER [None]
